FAERS Safety Report 5956449-9 (Version None)
Quarter: 2008Q4

REPORT INFORMATION
  Report Type: 
  Country: None (occurrence: None)
  Receive Date: 20081118
  Receipt Date: 20081110
  Transmission Date: 20090506
  Serious: Yes (Hospitalization)
  Sender: FDA-Public Use
  Company Number: JP-ELI_LILLY_AND_COMPANY-JP200811002430

PATIENT
  Age: 95 Year
  Sex: Male

DRUGS (2)
  1. HUMALOG [Suspect]
     Indication: TYPE 2 DIABETES MELLITUS
     Dosage: 20 U, UNK
     Route: 058
  2. MAGMITT [Concomitant]
     Dosage: 500 MG, DAILY (1/D)
     Route: 048

REACTIONS (8)
  - C-REACTIVE PROTEIN INCREASED [None]
  - EOSINOPHIL COUNT INCREASED [None]
  - ERYTHEMA [None]
  - HERPES SIMPLEX SEROLOGY POSITIVE [None]
  - PRURITUS [None]
  - PYREXIA [None]
  - STREPTOCOCCAL IDENTIFICATION TEST POSITIVE [None]
  - WHITE BLOOD CELL COUNT INCREASED [None]
